FAERS Safety Report 16608397 (Version 1)
Quarter: 2019Q3

REPORT INFORMATION
  Report Type: Spontaneous
  Country: CA (occurrence: CA)
  Receive Date: 20190722
  Receipt Date: 20190722
  Transmission Date: 20191004
  Serious: Yes (Hospitalization)
  Sender: FDA-Public Use
  Company Number: CA-PFIZER INC-2019308575

PATIENT
  Age: 31 Year
  Sex: Male
  Weight: 59 kg

DRUGS (1)
  1. CORTEF [Suspect]
     Active Substance: HYDROCORTISONE
     Dosage: 10 MG, 1X/DAY
     Route: 048

REACTIONS (3)
  - Blood glucose increased [Unknown]
  - Dry mouth [Unknown]
  - Urine output increased [Unknown]
